FAERS Safety Report 8131660-X (Version None)
Quarter: 2012Q1

REPORT INFORMATION
  Report Type: 
  Country: None (occurrence: None)
  Receive Date: 20120208
  Receipt Date: 20120125
  Transmission Date: 20120608
  Serious: Yes (Hospitalization)
  Sender: FDA-Public Use
  Company Number: DSA_54912_2012

PATIENT
  Sex: Male

DRUGS (4)
  1. SERTRALINE HYDROCHLORIDE [Concomitant]
  2. WELLBUTRIN XL [Suspect]
     Indication: DEPRESSION
     Dosage: 300 MG BID ORAL), 400 MG BID ORAL)
     Route: 048
     Dates: start: 20100129, end: 20100225
  3. WELLBUTRIN XL [Suspect]
     Indication: DEPRESSION
     Dosage: 300 MG BID ORAL), 400 MG BID ORAL)
     Route: 048
     Dates: start: 20100226, end: 20100406
  4. ETHANOL [Suspect]
     Indication: PRODUCT USED FOR UNKNOWN INDICATION
     Dosage: (DF)

REACTIONS (5)
  - DRUG INTERACTION [None]
  - LEGAL PROBLEM [None]
  - DELIRIUM [None]
  - PHYSICAL ASSAULT [None]
  - ABNORMAL BEHAVIOUR [None]
